FAERS Safety Report 14931457 (Version 2)
Quarter: 2018Q2

REPORT INFORMATION
  Report Type: Report from Study
  Country: US (occurrence: US)
  Receive Date: 20180524
  Receipt Date: 20180612
  Transmission Date: 20180711
  Serious: Yes (Death)
  Sender: FDA-Public Use
  Company Number: US-CIPLA LTD.-2018US18025

PATIENT

DRUGS (10)
  1. IFOSFAMIDE. [Concomitant]
     Active Substance: IFOSFAMIDE
     Indication: GERM CELL CANCER
     Dosage: 1800 MG/KG, DAYS 1 TO 5
     Route: 065
  2. OXALIPLATIN. [Suspect]
     Active Substance: OXALIPLATIN
     Indication: GERM CELL CANCER
     Dosage: UNK
     Route: 065
  3. MESNA. [Concomitant]
     Active Substance: MESNA
     Indication: GERM CELL CANCER
     Dosage: 1080 MG/M2, PER A DAY, DIVIDED TO THREE EQUAL DOSES OF 360 MG/M2
     Route: 065
  4. ETOPOSIDE. [Suspect]
     Active Substance: ETOPOSIDE
     Indication: GERM CELL CANCER
     Dosage: UNK
     Route: 048
  5. PACLITAXEL. [Suspect]
     Active Substance: PACLITAXEL
     Dosage: UNK
     Route: 065
  6. CARBOPLATIN. [Concomitant]
     Active Substance: CARBOPLATIN
     Indication: GERM CELL CANCER
     Dosage: UNK, AUC 6.5 DAY 1
     Route: 065
  7. GEMCITABINE [Suspect]
     Active Substance: GEMCITABINE\GEMCITABINE HYDROCHLORIDE
     Indication: GERM CELL CANCER
     Dosage: UNK
     Route: 065
  8. CISPLATIN. [Suspect]
     Active Substance: CISPLATIN
     Indication: GERM CELL CANCER
     Dosage: UNK
     Route: 065
  9. PACLITAXEL. [Suspect]
     Active Substance: PACLITAXEL
     Indication: GERM CELL CANCER
     Dosage: 135 MG/M2, DAY 1
     Route: 065
  10. FILGRASTIM [Concomitant]
     Active Substance: FILGRASTIM
     Indication: GERM CELL CANCER
     Dosage: 5 MICROG/KG/DOSE DAILY STARTING ON DAY 6 UNTIL ANC }1,500/MICROL
     Route: 065

REACTIONS (1)
  - Germ cell cancer [Fatal]
